FAERS Safety Report 24707562 (Version 1)
Quarter: 2024Q4

REPORT INFORMATION
  Report Type: Spontaneous
  Country: US (occurrence: US)
  Receive Date: 20241206
  Receipt Date: 20241206
  Transmission Date: 20250114
  Serious: Yes (Other)
  Sender: PERRIGO
  Company Number: US-PERRIGO-24US011226

PATIENT
  Sex: Male

DRUGS (1)
  1. DEXTROMETHORPHAN HYDROBROMIDE\GUAIFENESIN [Suspect]
     Active Substance: DEXTROMETHORPHAN HYDROBROMIDE\GUAIFENESIN
     Indication: Cough
     Dosage: ONE TABLET, BID
     Route: 048
     Dates: start: 20241112, end: 20241203

REACTIONS (3)
  - Angina pectoris [Recovered/Resolved]
  - Hypertension [Not Recovered/Not Resolved]
  - Incorrect product administration duration [Recovered/Resolved]

NARRATIVE: CASE EVENT DATE: 20240101
